FAERS Safety Report 20468119 (Version 1)
Quarter: 2022Q1

REPORT INFORMATION
  Report Type: Spontaneous
  Country: US (occurrence: US)
  Receive Date: 20220214
  Receipt Date: 20220214
  Transmission Date: 20220423
  Serious: Yes (Life-Threatening, Hospitalization)
  Sender: FDA-Public Use
  Company Number: US-STRIDES ARCOLAB LIMITED-2022SP001209

PATIENT
  Age: 39 Year
  Sex: Female

DRUGS (2)
  1. AMLODIPINE [Suspect]
     Active Substance: AMLODIPINE BESYLATE
     Indication: Product used for unknown indication
     Dosage: UNK (AT LEAST 300MG)
     Route: 065
  2. ALCOHOL [Concomitant]
     Active Substance: ALCOHOL
     Indication: Product used for unknown indication
     Dosage: UNK
     Route: 065

REACTIONS (16)
  - Pulmonary oedema [Recovered/Resolved]
  - Hypoxia [Recovered/Resolved]
  - Oedema peripheral [Recovered/Resolved]
  - Acute kidney injury [Recovered/Resolved]
  - Leukocytosis [Recovered/Resolved]
  - Electrocardiogram T wave abnormal [Recovered/Resolved]
  - Hypervolaemia [Recovered/Resolved]
  - Pulmonary alveolar haemorrhage [Recovered/Resolved]
  - Chest pain [Unknown]
  - Hypertension [Unknown]
  - Tachypnoea [Recovered/Resolved]
  - Pneumonia aspiration [Recovered/Resolved]
  - Depression [Recovered/Resolved]
  - Hypotension [Recovered/Resolved]
  - Tachycardia [Recovered/Resolved]
  - Intentional overdose [Recovered/Resolved]
